FAERS Safety Report 8168485-5 (Version None)
Quarter: 2012Q1

REPORT INFORMATION
  Report Type: 
  Country: None (occurrence: None)
  Receive Date: 20120227
  Receipt Date: 20120227
  Transmission Date: 20120608
  Serious: Yes (Hospitalization)
  Sender: FDA-Public Use
  Company Number: None

PATIENT
  Sex: Male
  Weight: 113 kg

DRUGS (3)
  1. PERPHENAZINE [Concomitant]
     Route: 048
  2. LITHIUM CARBONATE [Suspect]
     Dosage: 450MG
     Route: 048
  3. LISINOPRIL AND HYDROCHLOROTHIAZIDE [Concomitant]
     Route: 048

REACTIONS (5)
  - RENAL FAILURE ACUTE [None]
  - TOXICITY TO VARIOUS AGENTS [None]
  - VOMITING [None]
  - MENTAL STATUS CHANGES [None]
  - NEPHROPATHY [None]
